FAERS Safety Report 5087601-5 (Version None)
Quarter: 2006Q3

REPORT INFORMATION
  Report Type: 
  Country: None (occurrence: None)
  Receive Date: 20060727
  Receipt Date: 20060404
  Transmission Date: 20061208
  Serious: Yes (Other)
  Sender: FDA-Public Use
  Company Number: 2006048068

PATIENT
  Sex: Female

DRUGS (2)
  1. LYRICA [Suspect]
     Indication: DIABETIC NEUROPATHY
     Dosage: 150 MG (150 MG, 1 IN 1 D), UNKNOWN
     Dates: start: 20060301
  2. INSULIN (INSULIN) [Concomitant]

REACTIONS (1)
  - MUSCLE TWITCHING [None]
